FAERS Safety Report 4608032-5 (Version None)
Quarter: 2005Q2

REPORT INFORMATION
  Report Type: 
  Country: None (occurrence: None)
  Receive Date: 20050228
  Receipt Date: 20041130
  Transmission Date: 20051028
  Serious: No
  Sender: FDA-Public Use
  Company Number: FABR-10768

PATIENT
  Age: 31 Year
  Sex: Male
  Weight: 90 kg

DRUGS (2)
  1. FABRAZYME [Suspect]
     Indication: FABRY'S DISEASE
     Dosage: 90 MG Q2WKS  IV
     Route: 042
     Dates: start: 20031118, end: 20040501
  2. TEGRETOL [Concomitant]

REACTIONS (8)
  - BLOOD PRESSURE INCREASED [None]
  - CHROMATURIA [None]
  - DIZZINESS [None]
  - NECK PAIN [None]
  - PAIN OF SKIN [None]
  - RASH PAPULAR [None]
  - URINE ODOUR ABNORMAL [None]
  - VOMITING [None]
